FAERS Safety Report 6026715-X (Version None)
Quarter: 2008Q4

REPORT INFORMATION
  Report Type: 
  Country: None (occurrence: None)
  Receive Date: 20081222
  Receipt Date: 20081031
  Transmission Date: 20090506
  Serious: No
  Sender: FDA-Public Use
  Company Number: US-WYE-H06642908

PATIENT
  Age: 36 Year
  Sex: Female
  Weight: 83.99 kg

DRUGS (3)
  1. PRISTIQ [Suspect]
     Indication: DEPRESSION
     Dosage: 50 MG 1X PER 1 DAY,ORAL
     Route: 048
     Dates: start: 20080901
  2. FOSINOPRIL SODIUM [Concomitant]
  3. AMBIEN [Concomitant]

REACTIONS (4)
  - BLOOD PRESSURE INCREASED [None]
  - INSOMNIA [None]
  - MYDRIASIS [None]
  - NIGHT SWEATS [None]
